FAERS Safety Report 21041232 (Version 3)
Quarter: 2023Q1

REPORT INFORMATION
  Report Type: Report from Study
  Country: CA (occurrence: CA)
  Receive Date: 20220705
  Receipt Date: 20230116
  Transmission Date: 20230418
  Serious: Yes (Other)
  Sender: FDA-Public Use
  Company Number: CA-JNJFOC-20220661783

PATIENT
  Sex: Female
  Weight: 82 kg

DRUGS (3)
  1. REMICADE [Suspect]
     Active Substance: INFLIXIMAB
     Indication: Colitis ulcerative
     Route: 042
     Dates: start: 20151020
  2. REMICADE [Suspect]
     Active Substance: INFLIXIMAB
     Route: 042
  3. REMICADE [Suspect]
     Active Substance: INFLIXIMAB
     Route: 042
     Dates: end: 20230111

REACTIONS (1)
  - Herpes zoster oticus [Unknown]
